FAERS Safety Report 8157630-3 (Version None)
Quarter: 2012Q1

REPORT INFORMATION
  Report Type: 
  Country: None (occurrence: None)
  Receive Date: 20120222
  Receipt Date: 20120217
  Transmission Date: 20120608
  Serious: Yes (Life-Threatening)
  Sender: FDA-Public Use
  Company Number: CA-ASTRAZENECA-2012SE11401

PATIENT
  Age: 31 Year
  Sex: Male

DRUGS (1)
  1. SEROQUEL [Suspect]
     Route: 048
     Dates: start: 20100301

REACTIONS (1)
  - PHYSICAL ASSAULT [None]
